FAERS Safety Report 15141100 (Version 1)
Quarter: 2018Q3

REPORT INFORMATION
  Report Type: Spontaneous
  Country: US (occurrence: US)
  Receive Date: 20180713
  Receipt Date: 20180713
  Transmission Date: 20181010
  Serious: Yes (Hospitalization)
  Sender: FDA-Public Use
  Company Number: US-SCJOHNSON-2018-US-011192

PATIENT
  Age: 43 Year
  Sex: Female

DRUGS (2)
  1. SOFT N SURE FOAMED ANTISEPTIC HANDRUB [Suspect]
     Active Substance: ALCOHOL
     Route: 061
     Dates: start: 2017
  2. CAL STAT PLUS ANTISEPTIC HANDRUB WITH ENHANCED EMOLLIENTS [Suspect]
     Active Substance: ISOPROPYL ALCOHOL
     Route: 061
     Dates: start: 2017

REACTIONS (7)
  - Upper respiratory tract irritation [Recovered/Resolved]
  - Throat tightness [Recovered/Resolved]
  - Cough [Recovered/Resolved]
  - Pruritus [Recovered/Resolved]
  - Throat irritation [Recovered/Resolved]
  - Aphonia [Recovered/Resolved]
  - Dysgeusia [Unknown]

NARRATIVE: CASE EVENT DATE: 20180527
